FAERS Safety Report 4950551-6 (Version None)
Quarter: 2006Q1

REPORT INFORMATION
  Report Type: 
  Country: None (occurrence: None)
  Receive Date: 20060321
  Receipt Date: 20060321
  Transmission Date: 20060701
  Serious: Yes (Hospitalization)
  Sender: FDA-Public Use
  Company Number: None

PATIENT
  Age: 67 Year
  Sex: Male
  Weight: 76.6579 kg

DRUGS (16)
  1. GLUCOPHAGE [Suspect]
     Indication: DIABETES MELLITUS
     Dosage: 1000 MG BID PO
     Route: 048
     Dates: start: 20060120, end: 20060125
  2. REGULAR INSULIN (HUMULIN R) [Concomitant]
  3. NORVASC [Concomitant]
  4. ATENOLOL [Concomitant]
  5. HYDROCHLOROTHIAZIDE [Concomitant]
  6. COZAAR [Concomitant]
  7. PLAVIX [Concomitant]
  8. NOVO [Concomitant]
  9. PROMETHAZINE [Concomitant]
  10. DSY2NS [Concomitant]
  11. VITAMIN B-12 [Concomitant]
  12. CALCIUM GLUCORATE [Concomitant]
  13. PEPCID [Concomitant]
  14. FOLIC ACID [Concomitant]
  15. HUMULIN N [Concomitant]
  16. REGLAN [Concomitant]

REACTIONS (2)
  - PANCYTOPENIA [None]
  - VITAMIN B12 DEFICIENCY [None]
